FAERS Safety Report 19443448 (Version 2)
Quarter: 2021Q3

REPORT INFORMATION
  Report Type: Spontaneous
  Country: ES (occurrence: ES)
  Receive Date: 20210621
  Receipt Date: 20210805
  Transmission Date: 20211014
  Serious: Yes (Life-Threatening, Hospitalization, Other)
  Sender: FDA-Public Use
  Company Number: NVSC2021ES137887

PATIENT
  Age: 5 Year
  Sex: Female
  Weight: 22.5 kg

DRUGS (34)
  1. REMIFENTANIL HYDROCHLORIDE. [Suspect]
     Active Substance: REMIFENTANIL HYDROCHLORIDE
     Indication: WITHDRAWAL SYNDROME
     Dosage: 5 MG, PRN
     Route: 065
     Dates: start: 20210408, end: 20210411
  2. PROPOFOL. [Suspect]
     Active Substance: PROPOFOL
     Indication: PRODUCT USED FOR UNKNOWN INDICATION
     Dosage: 20 MG, PRN
     Route: 065
     Dates: start: 20210401, end: 20210403
  3. SEVOFLURANE. [Suspect]
     Active Substance: SEVOFLURANE
     Dosage: 10 ML, 1X/HOUR
     Route: 048
     Dates: start: 20210403, end: 20210407
  4. CLORAZEPATE [Suspect]
     Active Substance: CLORAZEPATE DIPOTASSIUM
     Indication: PRODUCT USED FOR UNKNOWN INDICATION
     Dosage: UNK
     Route: 065
  5. FENTANYL. [Suspect]
     Active Substance: FENTANYL
     Indication: PRODUCT USED FOR UNKNOWN INDICATION
     Dosage: 3.5 ?G/KG, 1X/HOUR
     Route: 065
     Dates: start: 20210329, end: 20210402
  6. FENTANYL. [Suspect]
     Active Substance: FENTANYL
     Dosage: 25 ?G PRN
     Route: 065
     Dates: start: 20210403
  7. KETAMINE [Suspect]
     Active Substance: KETAMINE
     Dosage: 1.3 ?G/KG, 1X/HOUR
     Route: 065
     Dates: start: 20210330
  8. ACETAMINOPHEN. [Concomitant]
     Active Substance: ACETAMINOPHEN
     Indication: SEDATION
     Dosage: 15 MG, PRN
     Route: 065
     Dates: start: 20210329, end: 20210404
  9. BUDESONIDE. [Concomitant]
     Active Substance: BUDESONIDE
     Indication: UPPER AIRWAY OBSTRUCTION
     Dosage: 2 MG, QD
     Route: 065
     Dates: start: 20210403, end: 20210403
  10. AMOXICILLIN+CLAVULANIC ACID [Concomitant]
     Active Substance: AMOXICILLIN\CLAVULANIC ACID
     Dosage: 575 MG, TID
     Route: 065
     Dates: start: 20210330, end: 20210403
  11. FENTANYL. [Suspect]
     Active Substance: FENTANYL
     Dosage: 2.5 ?G/KG, 1X/HOUR
     Route: 065
     Dates: start: 20210403, end: 20210405
  12. MIDAZOLAM. [Suspect]
     Active Substance: MIDAZOLAM
     Dosage: 1X/HOUR
     Route: 065
     Dates: start: 20210402, end: 20210403
  13. DEXMEDETOMIDINE. [Suspect]
     Active Substance: DEXMEDETOMIDINE
     Indication: PRODUCT USED FOR UNKNOWN INDICATION
     Dosage: UNK
     Route: 065
  14. EPINEPHRINE. [Concomitant]
     Active Substance: EPINEPHRINE
     Indication: PRODUCT USED FOR UNKNOWN INDICATION
     Dosage: UNK
     Route: 065
  15. ACETAMINOPHEN. [Concomitant]
     Active Substance: ACETAMINOPHEN
     Indication: ANALGESIC THERAPY
     Dosage: 350 MG, QID
     Route: 065
     Dates: start: 20210329
  16. KETAMINE [Suspect]
     Active Substance: KETAMINE
     Indication: SEDATION
     Dosage: 25 MG, PRN
     Route: 065
     Dates: start: 20210402, end: 20210403
  17. KETAMINE [Suspect]
     Active Substance: KETAMINE
     Dosage: 3.8 MG/KG, 1X/HOUR
     Route: 065
     Dates: start: 20210402, end: 20210403
  18. DEXAMETHASONE. [Concomitant]
     Active Substance: DEXAMETHASONE
     Indication: PRODUCT USED FOR UNKNOWN INDICATION
     Dosage: 4 MG, TID
     Route: 065
     Dates: start: 20210404
  19. FENTANYL. [Suspect]
     Active Substance: FENTANYL
     Dosage: 30 ?G PRN
     Route: 065
     Dates: start: 20210329, end: 20210402
  20. SEVOFLURANE. [Suspect]
     Active Substance: SEVOFLURANE
     Indication: SEDATION
     Dosage: 0.15 ?G/KG, CONTINUOUS/MIN
     Route: 048
     Dates: start: 20210405, end: 20210407
  21. MACROGOL [Concomitant]
     Active Substance: POLYETHYLENE GLYCOLS
     Indication: CONSTIPATION
     Dosage: 6.9 G, TID
     Route: 065
     Dates: start: 20210408
  22. FUROSEMIDE. [Concomitant]
     Active Substance: FUROSEMIDE
     Indication: FLUID OVERLOAD
     Dosage: 5 MG, TID
     Route: 065
     Dates: start: 20210331
  23. ONDANSETRON [Concomitant]
     Active Substance: ONDANSETRON
     Indication: FEEDING INTOLERANCE
     Dosage: 25 MG, QID
     Route: 065
     Dates: start: 20210329
  24. ONDANSETRON [Concomitant]
     Active Substance: ONDANSETRON
     Indication: PROPHYLAXIS
     Dosage: 4 MG, PRN
     Route: 065
     Dates: start: 20210403
  25. CISATRACURIUM. [Concomitant]
     Active Substance: CISATRACURIUM
     Indication: SEDATION
     Dosage: 3 ?G/KG, CONTINUOUS/MIN
     Route: 065
     Dates: start: 20210329, end: 20210404
  26. ACETAZOLAMIDE. [Concomitant]
     Active Substance: ACETAZOLAMIDE
     Indication: FISTULA
     Dosage: 5 MG, PRN
     Route: 065
     Dates: start: 20210403, end: 20210403
  27. SEVOFLURANE. [Suspect]
     Active Substance: SEVOFLURANE
     Dosage: 0.2 ML, PRN
     Route: 048
     Dates: start: 20210403
  28. MIDAZOLAM. [Suspect]
     Active Substance: MIDAZOLAM
     Indication: SEDATION
     Dosage: 4.1 MG/KG, 1X/HOUR
     Route: 065
     Dates: start: 20210329, end: 20210404
  29. MIDAZOLAM. [Suspect]
     Active Substance: MIDAZOLAM
     Dosage: 2.5 MG, PRN
     Route: 065
     Dates: start: 20210402, end: 20210403
  30. MOVANTIK [Suspect]
     Active Substance: NALOXEGOL OXALATE
     Indication: PRODUCT USED FOR UNKNOWN INDICATION
     Dosage: UNK
     Route: 048
  31. RANITIDINE. [Concomitant]
     Active Substance: RANITIDINE
     Indication: PRODUCT USED FOR UNKNOWN INDICATION
     Dosage: UNK
     Route: 065
  32. AMOXICILLIN+CLAVULANIC ACID [Concomitant]
     Active Substance: AMOXICILLIN\CLAVULANIC ACID
     Indication: PROPHYLAXIS
     Dosage: 600 MG, QID
     Route: 065
     Dates: start: 20210403
  33. ROCURONIUM [Concomitant]
     Active Substance: ROCURONIUM BROMIDE
     Indication: UPPER AIRWAY OBSTRUCTION
     Dosage: 7 MG, PRN
     Route: 065
     Dates: start: 20210403, end: 20210404
  34. ACETAZOLAMIDE. [Concomitant]
     Active Substance: ACETAZOLAMIDE
     Indication: UPPER AIRWAY OBSTRUCTION
     Dosage: 120 MG, BID
     Route: 065
     Dates: start: 20210331, end: 20210403

REACTIONS (3)
  - Laryngeal obstruction [Recovered/Resolved]
  - Withdrawal syndrome [Recovered/Resolved]
  - Off label use [Unknown]

NARRATIVE: CASE EVENT DATE: 20210403
